FAERS Safety Report 16104432 (Version 1)
Quarter: 2019Q1

REPORT INFORMATION
  Report Type: Spontaneous
  Country: JP (occurrence: JP)
  Receive Date: 20190322
  Receipt Date: 20190322
  Transmission Date: 20190418
  Serious: Yes (Hospitalization, Other)
  Sender: FDA-Public Use
  Company Number: JP-ELI_LILLY_AND_COMPANY-JP201903009355

PATIENT
  Age: 65 Year
  Sex: Male

DRUGS (3)
  1. ASPIRINE [Concomitant]
     Active Substance: ASPIRIN
     Indication: MYOCARDIAL INFARCTION
     Dosage: UNK UNK, UNKNOWN
     Route: 065
  2. ACELIO [Suspect]
     Active Substance: ACETAMINOPHEN
     Indication: DEVICE RELATED INFECTION
     Dosage: 1 G, UNK
     Route: 065
  3. PRASUGREL HYDROCHLORIDE [Suspect]
     Active Substance: PRASUGREL HYDROCHLORIDE
     Indication: MYOCARDIAL INFARCTION
     Dosage: UNK, UNKNOWN
     Route: 065

REACTIONS (2)
  - Device related infection [Unknown]
  - Toxic epidermal necrolysis [Recovering/Resolving]
